FAERS Safety Report 8532090 (Version 2)
Quarter: 2012Q4

REPORT INFORMATION
  Report Type: 
  Country: CA (occurrence: CA)
  Receive Date: 20120426
  Receipt Date: 20121017
  Transmission Date: 20130627
  Serious: Yes (Hospitalization, Other)
  Sender: FDA-Public Use
  Company Number: CA-ELI_LILLY_AND_COMPANY-CA201204006097

PATIENT
  Sex: Female

DRUGS (19)
  1. CYMBALTA [Suspect]
     Dosage: 60 mg, qd
  2. ORENCIA [Concomitant]
     Indication: RHEUMATOID ARTHRITIS
     Dosage: 750 mg, other
     Route: 042
     Dates: start: 20111020, end: 20111216
  3. LYRICA [Concomitant]
     Dosage: 20 mg, qd
  4. PREDNISONE [Concomitant]
     Dosage: 5 mg, qd
  5. ARAVA [Concomitant]
     Dosage: 10 mg, qd
  6. DILAUDID [Concomitant]
  7. PRAMIPEXOLE HYDROCHLORIDE [Concomitant]
  8. NAPROXEN [Concomitant]
  9. NEXIUM [Concomitant]
  10. CALCIUM [Concomitant]
  11. ATENOLOL [Concomitant]
  12. AMILORIDE [Concomitant]
  13. CALCITONIN [Concomitant]
  14. HYDROMORPHONE [Concomitant]
  15. LEVOTHYROXINE [Concomitant]
     Dosage: .50 mg, UNK
  16. ACETAMINOPHEN [Concomitant]
  17. OXYBUTYNIN [Concomitant]
  18. ALENDRONATE [Concomitant]
  19. ESOMEPRAZOLE [Concomitant]

REACTIONS (17)
  - Haemoglobin decreased [Unknown]
  - Abdominal pain [Unknown]
  - Vomiting [Unknown]
  - Clostridium difficile infection [Unknown]
  - Bone graft [Unknown]
  - Bursitis [Unknown]
  - Inflammation [Unknown]
  - Sleep apnoea syndrome [Unknown]
  - Post procedural infection [Unknown]
  - Urinary tract infection [Unknown]
  - Visual impairment [Unknown]
  - Wound complication [Unknown]
  - Asthenia [Unknown]
  - Weight decreased [Unknown]
  - Diarrhoea [Unknown]
  - Nausea [Unknown]
  - Gastrointestinal stoma complication [Unknown]
